FAERS Safety Report 11436585 (Version 1)
Quarter: 2015Q3

REPORT INFORMATION
  Report Type: Spontaneous
  Country: US (occurrence: US)
  Receive Date: 20150821
  Receipt Date: 20150821
  Transmission Date: 20151125
  Serious: No
  Sender: FDA-Public Use
  Company Number: US-ELI_LILLY_AND_COMPANY-US201404005047

PATIENT
  Sex: Male
  Weight: 86.62 kg

DRUGS (8)
  1. HUMULIN N [Concomitant]
     Active Substance: INSULIN HUMAN
     Dosage: 45 DF, EACH MORNING
     Route: 065
  2. LANTUS [Concomitant]
     Active Substance: INSULIN GLARGINE
     Dosage: 22 U, EACH MORNING
     Route: 065
  3. FUROSEMIDE. [Concomitant]
     Active Substance: FUROSEMIDE
     Dosage: UNK, QD
     Route: 065
  4. INSULIN HUMAN [Suspect]
     Active Substance: INSULIN HUMAN
     Indication: TYPE 1 DIABETES MELLITUS
     Dosage: 22 U, QD
     Route: 065
     Dates: start: 2004
  5. ALTACE [Concomitant]
     Active Substance: RAMIPRIL
     Dosage: 1 DF, QD
     Route: 065
  6. ASPIRIN. [Concomitant]
     Active Substance: ASPIRIN
     Dosage: 1 DF, QD
     Route: 048
  7. LIPITOR [Concomitant]
     Active Substance: ATORVASTATIN CALCIUM
     Dosage: 1 DF, QD
     Route: 048
  8. PROBENECID. [Concomitant]
     Active Substance: PROBENECID
     Dosage: 500 MG, UNKNOWN
     Route: 065

REACTIONS (9)
  - Fall [Unknown]
  - Blood glucose decreased [Unknown]
  - Diabetic retinopathy [Unknown]
  - Restless legs syndrome [Unknown]
  - Spinal osteoarthritis [Unknown]
  - Visual acuity reduced [Unknown]
  - Injection site scar [Unknown]
  - Injection site pain [Unknown]
  - Back pain [Unknown]
